FAERS Safety Report 8830114 (Version 1)
Quarter: 2012Q4

REPORT INFORMATION
  Report Type: Spontaneous
  Country: US (occurrence: None)
  Receive Date: 20121005
  Receipt Date: 20121005
  Transmission Date: 20130627
  Serious: Yes (Other)
  Sender: FDA-Public Use
  Company Number: None

PATIENT
  Age: 36 Year
  Sex: Female
  Weight: 113.4 kg

DRUGS (1)
  1. CYMBALTA 30 MG ELI LILLY [Suspect]
     Indication: NERVE PAIN
     Dosage: 30mg 1xday
     Dates: start: 20120206, end: 20120211

REACTIONS (11)
  - Abdominal pain [None]
  - Dyspepsia [None]
  - Restless legs syndrome [None]
  - Abdominal pain upper [None]
  - Eructation [None]
  - Flatulence [None]
  - Chest pain [None]
  - Hyperchlorhydria [None]
  - Nausea [None]
  - Eye pain [None]
  - Abdominal distension [None]
